FAERS Safety Report 26218868 (Version 1)
Quarter: 2025Q4

REPORT INFORMATION
  Report Type: Spontaneous
  Country: CH (occurrence: CH)
  Receive Date: 20251231
  Receipt Date: 20251231
  Transmission Date: 20260118
  Serious: Yes (Other)
  Sender: BRISTOL-MYERS SQUIBB COMPANY
  Company Number: None

PATIENT
  Age: 69 Year
  Sex: Male
  Weight: 90 kg

DRUGS (3)
  1. OPDUALAG [Suspect]
     Active Substance: NIVOLUMAB\RELATLIMAB-RMBW
     Indication: Metastatic malignant melanoma
     Dosage: NIVOLUMAB 480 MG/DOSE, RELATLIMAB 160 MG/DOSE
     Route: 042
     Dates: start: 20231207, end: 20240425
  2. LISINOPRIL [Concomitant]
     Active Substance: LISINOPRIL
     Indication: Product used for unknown indication
     Dosage: LONG TERM TREATMENT
     Route: 048
  3. BETNOVATE [Concomitant]
     Active Substance: BETAMETHASONE
     Indication: Product used for unknown indication

REACTIONS (8)
  - Sarcoid-like reaction [Not Recovered/Not Resolved]
  - Malignant neoplasm progression [Unknown]
  - Influenza like illness [Unknown]
  - Cough [Unknown]
  - Autoimmune lung disease [Unknown]
  - Systemic inflammatory response syndrome [Unknown]
  - Immune-mediated hypothyroidism [Unknown]
  - Skin lesion [Unknown]

NARRATIVE: CASE EVENT DATE: 20240101
